FAERS Safety Report 16207023 (Version 2)
Quarter: 2019Q2

REPORT INFORMATION
  Report Type: Report from Study
  Country: IT (occurrence: IT)
  Receive Date: 20190417
  Receipt Date: 20190501
  Transmission Date: 20190711
  Serious: Yes (Other)
  Sender: FDA-Public Use
  Company Number: IT-PFIZER INC-2019158929

PATIENT
  Sex: Female

DRUGS (4)
  1. MERCAPTOPURINE. [Suspect]
     Active Substance: MERCAPTOPURINE
     Indication: B-CELL TYPE ACUTE LEUKAEMIA
     Route: 065
  2. CYTARABINE. [Suspect]
     Active Substance: CYTARABINE
     Indication: B-CELL TYPE ACUTE LEUKAEMIA
     Route: 065
  3. DASATINIB. [Suspect]
     Active Substance: DASATINIB
     Indication: B-CELL TYPE ACUTE LEUKAEMIA
     Dosage: 1 DF, DAILY[60 MG/MQ/DAY]
     Route: 065
  4. CYCLOPHOSPHAMIDE. [Suspect]
     Active Substance: CYCLOPHOSPHAMIDE
     Indication: B-CELL TYPE ACUTE LEUKAEMIA
     Route: 065

REACTIONS (2)
  - Klebsiella sepsis [Recovering/Resolving]
  - Gastrointestinal haemorrhage [Recovered/Resolved]
